FAERS Safety Report 23533705 (Version 2)
Quarter: 2024Q1

REPORT INFORMATION
  Report Type: Spontaneous
  Country: US (occurrence: US)
  Receive Date: 20240216
  Receipt Date: 20240306
  Transmission Date: 20240410
  Serious: No
  Sender: FDA-Public Use
  Company Number: US-PFIZER INC-202400040775

PATIENT
  Age: 85 Year
  Sex: Female

DRUGS (2)
  1. BRAFTOVI [Suspect]
     Active Substance: ENCORAFENIB
     Dosage: 300 MG, DAILY
     Route: 048
     Dates: start: 20240130
  2. BRAFTOVI [Suspect]
     Active Substance: ENCORAFENIB
     Dosage: 3 CAPSULES DAILY MONDAY THROUGH FRIDAY, OFF ON WEEKENDS
     Route: 048
     Dates: end: 202402

REACTIONS (3)
  - Arthralgia [Not Recovered/Not Resolved]
  - Dizziness [Not Recovered/Not Resolved]
  - Off label use [Unknown]

NARRATIVE: CASE EVENT DATE: 20240210
